FAERS Safety Report 9486604 (Version 2)
Quarter: 2013Q3

REPORT INFORMATION
  Report Type: Spontaneous
  Country: ES (occurrence: None)
  Receive Date: 20130823
  Receipt Date: 20130906
  Transmission Date: 20140515
  Serious: Yes (Other)
  Sender: FDA-Public Use
  Company Number: AUR-APL-2013-06841

PATIENT
  Age: 38 Year
  Sex: Male

DRUGS (7)
  1. LEVOFLOXACIN [Suspect]
     Indication: PNEUMONIA
     Dosage: 1000 MG (500 MG, 2 IN 1 D), ORAL
     Route: 048
     Dates: start: 20100114
  2. OSELTAMIVIR [Concomitant]
  3. ESCITALOPRAM [Concomitant]
  4. VALPROIC ACID [Concomitant]
  5. PANTOPRAZOLE [Concomitant]
  6. ARIPIPRAZOLE [Concomitant]
  7. CLOZAPINE [Concomitant]

REACTIONS (3)
  - Delirium [None]
  - Hallucination, visual [None]
  - Disorientation [None]
